FAERS Safety Report 4557680-X (Version None)
Quarter: 2005Q1

REPORT INFORMATION
  Report Type: 
  Country: None (occurrence: None)
  Receive Date: 20050118
  Receipt Date: 20050103
  Transmission Date: 20050727
  Serious: Yes (Hospitalization)
  Sender: FDA-Public Use
  Company Number: 2005-BP-00217YA

PATIENT
  Age: 81 Year
  Sex: Male

DRUGS (6)
  1. OMIX (TAMSULOSIN HYDROCHLORIDE)  (TAMSULOSIN) (NR) [Suspect]
     Dosage: 0.4 MG PO
     Route: 048
     Dates: start: 20040923, end: 20041022
  2. CELEBREX [Suspect]
     Indication: AMPUTATION
     Dosage: PO
     Route: 048
     Dates: start: 20041016, end: 20041022
  3. CELEBREX [Suspect]
     Indication: POST PROCEDURAL PAIN
     Dosage: PO
     Route: 048
     Dates: start: 20041016, end: 20041022
  4. FUROSEMIDE (FUROSEMIDE) [Concomitant]
  5. ALLOPURINOL [Concomitant]
  6. VASERETIC [Concomitant]

REACTIONS (12)
  - BLOOD PRESSURE FLUCTUATION [None]
  - C-REACTIVE PROTEIN INCREASED [None]
  - ECZEMA [None]
  - EOSINOPHIL COUNT INCREASED [None]
  - EOSINOPHILIA [None]
  - FACE OEDEMA [None]
  - PHLEBITIS SUPERFICIAL [None]
  - PRURITUS [None]
  - PYREXIA [None]
  - RASH MACULO-PAPULAR [None]
  - RASH PUSTULAR [None]
  - STAPHYLOCOCCAL INFECTION [None]
